FAERS Safety Report 9324787 (Version 2)
Quarter: 2013Q2

REPORT INFORMATION
  Report Type: Spontaneous
  Country: JP (occurrence: None)
  Receive Date: 20130529
  Receipt Date: 20130610
  Transmission Date: 20140414
  Serious: Yes (Hospitalization)
  Sender: FDA-Public Use
  Company Number: TCI2013A02820

PATIENT
  Age: 52 Year
  Sex: Male

DRUGS (2)
  1. NESINA [Suspect]
     Indication: DIABETES MELLITUS
     Route: 048
     Dates: start: 20130312, end: 20130325
  2. SEIBULE (MIGLITOL) [Concomitant]

REACTIONS (1)
  - Stevens-Johnson syndrome [None]
